FAERS Safety Report 5876109-2 (Version None)
Quarter: 2008Q3

REPORT INFORMATION
  Report Type: 
  Country: None (occurrence: None)
  Receive Date: 20080909
  Receipt Date: 20080909
  Transmission Date: 20090109
  Serious: Yes (Disabling)
  Sender: FDA-Public Use
  Company Number: None

PATIENT
  Age: 50 Year
  Sex: Female
  Weight: 63.5036 kg

DRUGS (3)
  1. OGEN [Suspect]
     Indication: HORMONE REPLACEMENT THERAPY
     Dosage: DAILY PO
     Route: 048
  2. OGEN [Suspect]
     Indication: HYSTERECTOMY
     Dosage: DAILY PO
     Route: 048
  3. LEVOTHROID [Suspect]
     Indication: AUTOIMMUNE THYROIDITIS
     Dosage: DAILY PO
     Route: 048

REACTIONS (2)
  - EYE DISORDER [None]
  - VISION BLURRED [None]
